FAERS Safety Report 18143535 (Version 3)
Quarter: 2022Q2

REPORT INFORMATION
  Report Type: Report from Study
  Country: US (occurrence: US)
  Receive Date: 20200812
  Receipt Date: 20220412
  Transmission Date: 20220721
  Serious: Yes (Other)
  Sender: FDA-Public Use
  Company Number: US-ABBVIE-20K-163-3511895-00

PATIENT
  Sex: Female

DRUGS (1)
  1. HUMIRA [Suspect]
     Active Substance: ADALIMUMAB
     Indication: Colitis ulcerative
     Dosage: CITRATE FREE
     Route: 058
     Dates: start: 20190115

REACTIONS (4)
  - Surgery [Unknown]
  - Bladder prolapse [Recovered/Resolved with Sequelae]
  - Bladder operation [Recovered/Resolved with Sequelae]
  - Unevaluable event [Unknown]

NARRATIVE: CASE EVENT DATE: 20190101
